FAERS Safety Report 5531999-8 (Version None)
Quarter: 2007Q4

REPORT INFORMATION
  Report Type: 
  Country: None (occurrence: None)
  Receive Date: 20071203
  Receipt Date: 20071126
  Transmission Date: 20080405
  Serious: Yes (Hospitalization)
  Sender: FDA-Public Use
  Company Number: FR-WYE-H01290907

PATIENT
  Age: 32 Year
  Sex: Female

DRUGS (8)
  1. EUPANTOL [Suspect]
     Dosage: UNKNOWN
     Route: 048
     Dates: end: 20070927
  2. ARAVA [Suspect]
     Indication: RHEUMATOID ARTHRITIS
     Route: 048
     Dates: start: 20070201
  3. LOPERAMIDE HCL [Suspect]
     Indication: COLITIS
     Dosage: ^DF^
     Route: 048
     Dates: start: 20070922, end: 20070925
  4. LOPERAMIDE HCL [Suspect]
     Dosage: ^DF^
     Route: 048
     Dates: start: 20070925, end: 20070925
  5. PREDNISONE TAB [Suspect]
     Indication: RHEUMATOID ARTHRITIS
     Route: 048
  6. DAFALGAN [Suspect]
     Indication: RHEUMATOID ARTHRITIS
     Dosage: ^DF^
     Route: 048
     Dates: end: 20070927
  7. ENBREL [Suspect]
     Indication: RHEUMATOID ARTHRITIS
     Dosage: UNKNOWN
     Route: 058
     Dates: start: 20070830, end: 20070920
  8. APRANAX [Suspect]
     Indication: RHEUMATOID ARTHRITIS
     Route: 048

REACTIONS (8)
  - CHEST PAIN [None]
  - ERYTHEMA NODOSUM [None]
  - HEADACHE [None]
  - MOUTH ULCERATION [None]
  - PYREXIA [None]
  - TACHYCARDIA [None]
  - UVEITIS [None]
  - VOMITING [None]
